FAERS Safety Report 14999137 (Version 1)
Quarter: 2018Q2

REPORT INFORMATION
  Report Type: Spontaneous
  Country: US (occurrence: US)
  Receive Date: 20180522
  Receipt Date: 20180522
  Transmission Date: 20180711
  Serious: No
  Sender: FDA-Public Use
  Company Number: None

PATIENT
  Age: 27 Year
  Sex: Male
  Weight: 74.25 kg

DRUGS (2)
  1. CIALIS [Concomitant]
     Active Substance: TADALAFIL
  2. PROPECIA [Suspect]
     Active Substance: FINASTERIDE
     Indication: ANDROGENETIC ALOPECIA
     Dosage: ?          QUANTITY:1 TABLET(S);?
     Route: 048
     Dates: start: 20170715, end: 20170731

REACTIONS (9)
  - Testicular pain [None]
  - Erectile dysfunction [None]
  - Male orgasmic disorder [None]
  - Dyspareunia [None]
  - Penile pain [None]
  - Loss of libido [None]
  - Fatigue [None]
  - Mental impairment [None]
  - Peyronie^s disease [None]

NARRATIVE: CASE EVENT DATE: 20170715
